FAERS Safety Report 21722827 (Version 1)
Quarter: 2022Q4

REPORT INFORMATION
  Report Type: Spontaneous
  Country: CN (occurrence: CN)
  Receive Date: 20221213
  Receipt Date: 20221213
  Transmission Date: 20230112
  Serious: Yes (Other)
  Sender: FDA-Public Use
  Company Number: CN-PFIZER INC-202201357620

PATIENT
  Age: 73 Year
  Sex: Female

DRUGS (1)
  1. MEROPENEM [Suspect]
     Active Substance: MEROPENEM
     Dosage: 1 G, 3X/DAY (1G Q8H)
     Dates: start: 20201210, end: 20201215

REACTIONS (1)
  - Seizure like phenomena [Recovered/Resolved]

NARRATIVE: CASE EVENT DATE: 20201215
